FAERS Safety Report 4574522-7 (Version None)
Quarter: 2005Q1

REPORT INFORMATION
  Report Type: 
  Country: None (occurrence: None)
  Receive Date: 20050204
  Receipt Date: 20050121
  Transmission Date: 20050727
  Serious: Yes (Hospitalization)
  Sender: FDA-Public Use
  Company Number: 200510336BCC

PATIENT
  Age: 7 Day
  Sex: Male

DRUGS (2)
  1. RID MOUSSE [Suspect]
     Indication: LICE INFESTATION
     Dosage: ONCE, TRANSMAMMARY
     Route: 063
     Dates: start: 20050119
  2. RID MOUSSE [Suspect]
     Indication: PROPHYLAXIS
     Dosage: ONCE, TRANSMAMMARY
     Route: 063
     Dates: start: 20050119

REACTIONS (2)
  - DRUG EXPOSURE VIA BREAST MILK [None]
  - JAUNDICE NEONATAL [None]
